FAERS Safety Report 20175964 (Version 1)
Quarter: 2021Q4

REPORT INFORMATION
  Report Type: Other
  Country: JP (occurrence: None)
  Receive Date: 20211213
  Receipt Date: 20211213
  Transmission Date: 20220303
  Serious: Yes (Other)
  Sender: FDA-Public Use
  Company Number: JP-ROCHE-2974968

PATIENT
  Age: 62 Year
  Sex: Female

DRUGS (2)
  1. PEGINTERFERON ALFA-2A [Suspect]
     Active Substance: PEGINTERFERON ALFA-2A
     Indication: Hepatitis C
     Route: 065
     Dates: start: 201410, end: 201503
  2. RIBAVIRIN [Concomitant]
     Active Substance: RIBAVIRIN
     Indication: Hepatitis C
     Route: 065
     Dates: start: 201410, end: 201503

REACTIONS (2)
  - Sarcoidosis [Recovered/Resolved]
  - Uveitis [Recovering/Resolving]
